FAERS Safety Report 9786409 (Version 1)
Quarter: 2013Q4

REPORT INFORMATION
  Report Type: Spontaneous
  Country: US (occurrence: FI)
  Receive Date: 20131227
  Receipt Date: 20131227
  Transmission Date: 20140711
  Serious: Yes (Hospitalization)
  Sender: FDA-Public Use
  Company Number: FI-FRI-1000052462

PATIENT
  Age: 61 Year
  Sex: Female

DRUGS (3)
  1. CEFTAROLINE FOSAMIL [Suspect]
     Indication: OSTEITIS
     Dosage: 1200 MG
     Route: 042
     Dates: start: 20131114, end: 20131204
  2. SANDIMMUN NEORAL [Concomitant]
     Indication: SCLERODERMA
     Dosage: 100MG + 75MG, 50 MG DAILY
     Route: 048
  3. LYRICA [Concomitant]
     Dosage: 150 MG
     Route: 048

REACTIONS (2)
  - Petechiae [Recovered/Resolved]
  - Platelet count decreased [Unknown]
